FAERS Safety Report 6174248-2 (Version None)
Quarter: 2009Q2

REPORT INFORMATION
  Report Type: 
  Country: None (occurrence: None)
  Receive Date: 20090430
  Receipt Date: 20080314
  Transmission Date: 20091009
  Serious: No
  Sender: FDA-Public Use
  Company Number: US-ASTRAZENECA-2008UW05267

PATIENT
  Age: 17490 Day
  Sex: Female
  Weight: 65.8 kg

DRUGS (2)
  1. NEXIUM [Suspect]
     Indication: DYSPEPSIA
     Route: 048
     Dates: start: 20080313
  2. CRESTOR [Concomitant]
     Route: 048

REACTIONS (2)
  - HEADACHE [None]
  - NECK PAIN [None]
